FAERS Safety Report 19125853 (Version 1)
Quarter: 2021Q2

REPORT INFORMATION
  Report Type: Spontaneous
  Country: US (occurrence: US)
  Receive Date: 20210412
  Receipt Date: 20210412
  Transmission Date: 20210717
  Serious: Yes (Other)
  Sender: FDA-Public Use
  Company Number: US-INTRA-CELLULAR THERAPIES, INC.-2021ICT00154

PATIENT
  Age: 21 Year
  Sex: Female

DRUGS (2)
  1. LSD [Suspect]
     Active Substance: LYSERGIDE
  2. CAPLYTA [Suspect]
     Active Substance: LUMATEPERONE
     Indication: SCHIZOPHRENIA

REACTIONS (2)
  - Seizure [Unknown]
  - Depression [Unknown]
